FAERS Safety Report 6279968-7 (Version None)
Quarter: 2009Q3

REPORT INFORMATION
  Report Type: 
  Country: None (occurrence: None)
  Receive Date: 20090723
  Receipt Date: 20090310
  Transmission Date: 20100115
  Serious: No
  Sender: FDA-Public Use
  Company Number: US-AMGEN-KDL331037

PATIENT
  Sex: Male
  Weight: 89 kg

DRUGS (14)
  1. PROCRIT [Suspect]
     Indication: RENAL FAILURE CHRONIC
     Dates: start: 20081101
  2. GLUCOTROL [Concomitant]
  3. HYDROCHLOROTHIAZIDE [Concomitant]
  4. FERROUS SULFATE TAB [Concomitant]
  5. ASPIRIN [Concomitant]
  6. LIPITOR [Concomitant]
  7. PEPCID [Concomitant]
  8. ALLOPURINOL [Concomitant]
  9. NORVASC [Concomitant]
  10. COLCHICINE [Concomitant]
  11. COREG [Concomitant]
  12. CALCITRIOL [Concomitant]
  13. FLOMAX [Concomitant]
  14. BENICAR [Concomitant]

REACTIONS (1)
  - BLOOD GLUCOSE INCREASED [None]
